FAERS Safety Report 6849058-0 (Version None)
Quarter: 2010Q3

REPORT INFORMATION
  Report Type: 
  Country: None (occurrence: None)
  Receive Date: 20100716
  Receipt Date: 20071108
  Transmission Date: 20110219
  Serious: No
  Sender: FDA-Public Use
  Company Number: US-PFIZER INC-2007080764

PATIENT
  Sex: Female
  Weight: 88.181 kg

DRUGS (7)
  1. CHANTIX [Suspect]
     Indication: SMOKING CESSATION THERAPY
     Dates: start: 20070501, end: 20070901
  2. ATENOLOL [Concomitant]
     Indication: HYPERTENSION
  3. ZYRTEC [Concomitant]
  4. PREVACID [Concomitant]
  5. ZOLOFT [Concomitant]
  6. ESTROGENS [Concomitant]
  7. ESGIC [Concomitant]
     Indication: HEADACHE

REACTIONS (8)
  - ANXIETY [None]
  - FEELING ABNORMAL [None]
  - HOT FLUSH [None]
  - HYPERHIDROSIS [None]
  - MALAISE [None]
  - SEDATION [None]
  - THROAT IRRITATION [None]
  - VISION BLURRED [None]
